FAERS Safety Report 13489039 (Version 1)
Quarter: 2017Q2

REPORT INFORMATION
  Report Type: Spontaneous
  Country: US (occurrence: US)
  Receive Date: 20170427
  Receipt Date: 20170427
  Transmission Date: 20170830
  Serious: Yes (Other)
  Sender: FDA-Public Use
  Company Number: US-FRESENIUS KABI-FK201703323

PATIENT
  Age: 27 Year
  Sex: Female

DRUGS (2)
  1. HALOPERIDOL INJECTION (MANUFACTURER UNKNOWN) [Suspect]
     Active Substance: HALOPERIDOL LACTATE
     Indication: AGITATION
     Route: 065
  2. HALOPERIDOL INJECTION (MANUFACTURER UNKNOWN) [Suspect]
     Active Substance: HALOPERIDOL LACTATE
     Indication: ANXIETY
     Route: 065

REACTIONS (5)
  - Foetal movement disorder [Recovered/Resolved]
  - Dystonia [Recovered/Resolved]
  - Uterine contractions abnormal [Recovered/Resolved]
  - Exposure during pregnancy [Recovered/Resolved]
  - Torticollis [Recovered/Resolved]
